FAERS Safety Report 5129203-8 (Version None)
Quarter: 2006Q4

REPORT INFORMATION
  Report Type: 
  Country: None (occurrence: None)
  Receive Date: 20061018
  Receipt Date: 20060918
  Transmission Date: 20070319
  Serious: Yes (Life-Threatening)
  Sender: FDA-Public Use
  Company Number: US-KINGPHARMUSA00001-K200601187

PATIENT
  Age: 64 Year
  Sex: Female
  Weight: 72 kg

DRUGS (5)
  1. SONATA [Suspect]
     Indication: SLEEP DISORDER
     Dosage: 10 MG, QD
     Route: 048
     Dates: start: 20040101, end: 20060601
  2. ATIVAN [Suspect]
     Indication: SLEEP DISORDER
     Dosage: 1 MG, QD
     Route: 048
  3. VERSED [Suspect]
     Indication: PAIN
     Route: 042
     Dates: start: 20060603, end: 20060603
  4. DEMEROL [Suspect]
     Indication: PAIN
     Dates: start: 20060603, end: 20060603
  5. XALATAN /01297301/ [Concomitant]
     Indication: GLAUCOMA
     Dosage: 1 DROP, QD, IN BOTH EYES
     Route: 031
     Dates: start: 20040101

REACTIONS (5)
  - CIRCULATORY COLLAPSE [None]
  - CYANOSIS [None]
  - DRUG INTERACTION [None]
  - PULSE ABSENT [None]
  - RESPIRATORY ARREST [None]
